FAERS Safety Report 7576439-2 (Version None)
Quarter: 2011Q2

REPORT INFORMATION
  Report Type: 
  Country: None (occurrence: None)
  Receive Date: 20110624
  Receipt Date: 20110624
  Transmission Date: 20111010
  Serious: Yes (Life-Threatening)
  Sender: FDA-Public Use
  Company Number: None

PATIENT
  Age: 44 Year
  Sex: Female
  Weight: 61.2356 kg

DRUGS (2)
  1. CADD LEGACY [Concomitant]
  2. VELETRI ACTELION [Suspect]
     Indication: PULMONARY ARTERIAL HYPERTENSION
     Dosage: 45.8 NG PER KG PER MIN CONTINUOUSLY

REACTIONS (2)
  - DEVICE MALFUNCTION [None]
  - DYSPNOEA EXERTIONAL [None]
